FAERS Safety Report 11637473 (Version 1)
Quarter: 2015Q4

REPORT INFORMATION
  Report Type: Spontaneous
  Country: US (occurrence: US)
  Receive Date: 20151016
  Receipt Date: 20151016
  Transmission Date: 20160304
  Serious: Yes (Other)
  Sender: FDA-Public Use
  Company Number: US-PFIZER INC-2015322811

PATIENT
  Sex: Female

DRUGS (2)
  1. LYRICA [Suspect]
     Active Substance: PREGABALIN
     Dosage: 300 MG, UNK
  2. PLEXUS [Concomitant]
     Dosage: UNK
     Dates: start: 201505

REACTIONS (3)
  - Weight increased [Unknown]
  - Weight decreased [Unknown]
  - Energy increased [Unknown]
